FAERS Safety Report 6328799-8 (Version None)
Quarter: 2009Q3

REPORT INFORMATION
  Report Type: 
  Country: None (occurrence: None)
  Receive Date: 20090824
  Receipt Date: 20090824
  Transmission Date: 20100115
  Serious: Yes (Other)
  Sender: FDA-Public Use
  Company Number: None

PATIENT
  Age: 50 Year
  Sex: Female
  Weight: 70.3075 kg

DRUGS (1)
  1. CYMBALTA [Suspect]
     Indication: ANALGESIA
     Dosage: 60 MGS. ONCE DAILY PO
     Route: 048
     Dates: start: 20090701, end: 20090812

REACTIONS (9)
  - HYPERHIDROSIS [None]
  - HYPOAESTHESIA [None]
  - MENTAL IMPAIRMENT [None]
  - MIOSIS [None]
  - NAUSEA [None]
  - NIGHTMARE [None]
  - PARAESTHESIA [None]
  - PUPILLARY LIGHT REFLEX TESTS ABNORMAL [None]
  - VOMITING [None]
